FAERS Safety Report 9927942 (Version 1)
Quarter: 2014Q1

REPORT INFORMATION
  Report Type: Spontaneous
  Country: US (occurrence: US)
  Receive Date: 20140227
  Receipt Date: 20140227
  Transmission Date: 20141002
  Serious: Yes (Other)
  Sender: FDA-Public Use
  Company Number: US-PFIZER INC-2014052773

PATIENT
  Age: 89 Year
  Sex: Male
  Weight: 79.37 kg

DRUGS (3)
  1. TOVIAZ [Suspect]
     Dosage: 8 MG, SINGLE
     Dates: start: 20140222, end: 20140222
  2. TRAVATAN [Concomitant]
     Indication: GLAUCOMA
     Dosage: UNK
  3. DORZOLAMIDE [Concomitant]
     Indication: GLAUCOMA
     Dosage: UNK

REACTIONS (1)
  - Urinary retention [Unknown]
